FAERS Safety Report 4310927-7 (Version None)
Quarter: 2004Q1

REPORT INFORMATION
  Report Type: 
  Country: None (occurrence: None)
  Receive Date: 20040302
  Receipt Date: 20040227
  Transmission Date: 20041129
  Serious: Yes (Death)
  Sender: FDA-Public Use
  Company Number: USA-2004-0013442

PATIENT
  Age: 32 Year
  Sex: Female

DRUGS (1)
  1. SPECTRACEF [Suspect]
     Indication: CELLULITIS
     Dosage: MG

REACTIONS (1)
  - DEATH [None]
